FAERS Safety Report 6179803-1 (Version None)
Quarter: 2009Q2

REPORT INFORMATION
  Report Type: 
  Country: None (occurrence: None)
  Receive Date: 20090501
  Receipt Date: 20090415
  Transmission Date: 20091009
  Serious: Yes (Hospitalization)
  Sender: FDA-Public Use
  Company Number: ADE#08-080DPR

PATIENT
  Age: 80 Year
  Sex: Female

DRUGS (7)
  1. DIGOXIN [Suspect]
     Indication: ATRIAL FIBRILLATION
     Dates: end: 20090411
  2. PHENOBARBITAL TAB [Concomitant]
  3. WARFARIN SODIUM [Concomitant]
  4. ATENOLOL [Concomitant]
  5. LIPITOR [Concomitant]
  6. LUMIGAN EYE DROPS [Concomitant]
  7. ACIPHEX [Concomitant]

REACTIONS (3)
  - DIZZINESS [None]
  - DYSSTASIA [None]
  - PRODUCT QUALITY ISSUE [None]
